FAERS Safety Report 4493731-9 (Version None)
Quarter: 2004Q4

REPORT INFORMATION
  Report Type: 
  Country: None (occurrence: None)
  Receive Date: 20041105
  Receipt Date: 20041025
  Transmission Date: 20050328
  Serious: Yes (Other)
  Sender: FDA-Public Use
  Company Number: US-ABBOTT-04P-163-0278588-00

PATIENT
  Sex: Female
  Weight: 63.106 kg

DRUGS (6)
  1. DEPAKOTE ER [Suspect]
     Indication: GRAND MAL CONVULSION
     Route: 048
     Dates: start: 19980201, end: 20000101
  2. DEPAKOTE ER [Suspect]
     Route: 048
     Dates: start: 20000101, end: 20041019
  3. ANASTROZOLE [Concomitant]
     Indication: BREAST CANCER
     Route: 048
     Dates: start: 20030101
  4. RED YEAST RICE [Concomitant]
     Indication: BLOOD CHOLESTEROL INCREASED
     Route: 048
  5. CALCIUM [Concomitant]
     Indication: DRUG USE FOR UNKNOWN INDICATION
     Route: 048
  6. MULTI-VITAMINS [Concomitant]
     Indication: DRUG USE FOR UNKNOWN INDICATION
     Route: 048

REACTIONS (3)
  - BLOOD GLUCOSE DECREASED [None]
  - BREAST CANCER [None]
  - SOMNOLENCE [None]
